FAERS Safety Report 8786138 (Version 1)
Quarter: 2012Q4

REPORT INFORMATION
  Report Type: Report from Study
  Country: US (occurrence: US)
  Receive Date: 20120914
  Receipt Date: 20120914
  Transmission Date: 20130627
  Serious: No
  Sender: FDA-Public Use
  Company Number: US-VERTEX PHARMACEUTICAL INC.-AE-2012-010921

PATIENT
  Age: 54 Year
  Sex: Female
  Weight: 82.73 kg

DRUGS (6)
  1. INCIVEK [Suspect]
     Indication: HEPATITIS C
     Route: 048
  2. RIBAPAK PAK [Concomitant]
     Indication: HEPATITIS C
  3. PEGASYS [Concomitant]
     Indication: HEPATITIS C
  4. FOSAMAX [Concomitant]
  5. PREVACAID [Concomitant]
  6. FLAXSEED OIL [Concomitant]

REACTIONS (7)
  - Influenza like illness [Unknown]
  - Vision blurred [Unknown]
  - Decreased appetite [Unknown]
  - Fatigue [Unknown]
  - Urticaria [Recovered/Resolved]
  - Dysgeusia [Unknown]
  - Diarrhoea [Unknown]
